FAERS Safety Report 24057667 (Version 1)
Quarter: 2024Q3

REPORT INFORMATION
  Report Type: Spontaneous
  Country: CA (occurrence: CA)
  Receive Date: 20240706
  Receipt Date: 20240706
  Transmission Date: 20241016
  Serious: Yes (Other)
  Sender: BAXTER
  Company Number: CA-BAXTER-2024BAX020837

PATIENT
  Age: 62 Year
  Sex: Female
  Weight: 53 kg

DRUGS (12)
  1. SODIUM CHLORIDE [Suspect]
     Active Substance: SODIUM CHLORIDE
     Indication: Pruritus
     Dosage: (NORMAL SALINE) (DOSAGE FORM: NOT SPECIFIED) AT AN UNSPECIFIED DOSE AND FREQUENCY
     Route: 065
  2. SODIUM CHLORIDE [Suspect]
     Active Substance: SODIUM CHLORIDE
     Indication: Premedication
     Dosage: (NORMAL SALINE) (DOSAGE FORM: UNKNOWN) AT AN UNSPECIFIED DOSE AND FREQUENCY
     Route: 065
  3. SODIUM CHLORIDE [Suspect]
     Active Substance: SODIUM CHLORIDE
     Indication: Infusion related reaction
  4. ACETAMINOPHEN [Suspect]
     Active Substance: ACETAMINOPHEN
     Indication: Pruritus
     Dosage: 1000 MG AT AN UNSPECIFIED FREQUENCY
     Route: 048
  5. ACETAMINOPHEN [Suspect]
     Active Substance: ACETAMINOPHEN
     Indication: Infusion related reaction
  6. EBASTINE [Suspect]
     Active Substance: EBASTINE
     Indication: Pruritus
     Dosage: 5 MG AT AN UNSPECIFIED FREQUENCY (DOSAGE FORM: NOT SPECIFIED)
     Route: 048
  7. EBASTINE [Suspect]
     Active Substance: EBASTINE
     Indication: Premedication
     Dosage: 5 MG AT AN UNSPECIFIED FREQUENCY(DOSAGE FORM: UNKNOWN)
     Route: 048
  8. EBASTINE [Suspect]
     Active Substance: EBASTINE
     Indication: Infusion related reaction
  9. REMICADE [Suspect]
     Active Substance: INFLIXIMAB
     Indication: Colitis ulcerative
     Dosage: 540 MG, 1 EVERY 4 WEEKS
     Route: 041
  10. REMICADE [Suspect]
     Active Substance: INFLIXIMAB
     Indication: Colitis ulcerative
     Dosage: 530 MG AT AN UNSPECIFIED FREQUENCY (DOSAGE FORM: POWDER FOR SOLUTION INTRAVENOUS)
     Route: 041
  11. ACETAMINOPHEN [Concomitant]
     Active Substance: ACETAMINOPHEN
     Indication: Premedication
     Dosage: 1000 MG AT AN UNSPECIFIED FREQUENCY (DOSAGE FORM: NOT SPECIFIED)
     Route: 048
  12. BENADRYL [Concomitant]
     Active Substance: DIPHENHYDRAMINE HYDROCHLORIDE
     Indication: Premedication
     Dosage: 50 MG AT AN UNSPECIFIED FREQUENCY (DOSAGE FORM: UNKNOWN)
     Route: 042

REACTIONS (4)
  - Flushing [Unknown]
  - Infusion related reaction [Unknown]
  - Pruritus [Unknown]
  - Urticaria [Unknown]
